FAERS Safety Report 8285490-9 (Version None)
Quarter: 2012Q2

REPORT INFORMATION
  Report Type: 
  Country: None (occurrence: None)
  Receive Date: 20120413
  Receipt Date: 20120220
  Transmission Date: 20120825
  Serious: No
  Sender: FDA-Public Use
  Company Number: US-ASTRAZENECA-2012SE00673

PATIENT
  Age: 68 Year
  Sex: Female
  Weight: 73.5 kg

DRUGS (2)
  1. THYROID PILLS [Concomitant]
  2. NEXIUM [Suspect]
     Indication: OESOPHAGEAL DISORDER
     Dosage: QD
     Route: 048

REACTIONS (1)
  - APHAGIA [None]
